FAERS Safety Report 13241250 (Version 4)
Quarter: 2017Q1

REPORT INFORMATION
  Report Type: Report from Study
  Country: None (occurrence: BE)
  Receive Date: 20170216
  Receipt Date: 20170307
  Transmission Date: 20170428
  Serious: Yes (Hospitalization)
  Sender: FDA-Public Use
  Company Number: BE-ABBVIE-15K-013-1499304-00

PATIENT
  Age: 53 Year
  Sex: Male

DRUGS (18)
  1. DUODOPA [Suspect]
     Active Substance: CARBIDOPA\LEVODOPA
     Dosage: CONTINUOUS DOSE SLIGHTLY DECREASED
     Route: 050
     Dates: start: 20160118, end: 20160128
  2. DUODOPA [Suspect]
     Active Substance: CARBIDOPA\LEVODOPA
     Dosage: AM=4ML, CD=2.4ML/HR DURING 16HRS, ED=1ML
     Route: 050
     Dates: start: 20160518, end: 20160519
  3. DUODOPA [Suspect]
     Active Substance: CARBIDOPA\LEVODOPA
     Dosage: AM=4ML, CD=2.1ML/HR DURING 16HRS, ED=0.8ML
     Route: 050
     Dates: start: 20160715, end: 20161219
  4. DUODOPA [Suspect]
     Active Substance: CARBIDOPA\LEVODOPA
     Dosage: AM=3.5ML, CD=2.3ML/HR DURING 16HRS, ED=0.6ML
     Route: 050
     Dates: start: 20170215, end: 20170301
  5. STALEVO [Concomitant]
     Active Substance: CARBIDOPA\ENTACAPONE\LEVODOPA
     Indication: PARKINSON^S DISEASE
     Dosage: FORM STRENGTH: 150MG/37.5MG/200MG
     Route: 048
  6. DUODOPA [Suspect]
     Active Substance: CARBIDOPA\LEVODOPA
     Indication: PARKINSON^S DISEASE
     Dosage: AM=5ML; CD=2.3ML/H FOR 16HRS; ED=1.5ML
     Route: 050
     Dates: start: 20130121, end: 20130601
  7. DUODOPA [Suspect]
     Active Substance: CARBIDOPA\LEVODOPA
     Dosage: AM=3ML; CD=2.5ML/HR DURING 16HRS;ED=1.5ML
     Route: 050
     Dates: start: 20160105, end: 20160118
  8. DUODOPA [Suspect]
     Active Substance: CARBIDOPA\LEVODOPA
     Route: 050
     Dates: start: 20160330, end: 20160518
  9. DUODOPA [Suspect]
     Active Substance: CARBIDOPA\LEVODOPA
     Dosage: AM= 3.5 ML; CD= 2.1 (AM) + 2.3 (PM) ML/H DURING 16 HRS
     Route: 050
     Dates: start: 20170301
  10. ASAFLOW [Concomitant]
     Active Substance: ASPIRIN
     Indication: PRODUCT USED FOR UNKNOWN INDICATION
  11. DUODOPA [Suspect]
     Active Substance: CARBIDOPA\LEVODOPA
     Dosage: DOSES CONTINUOUSLY MONITORED AND ADAPTED.
     Route: 050
     Dates: start: 20130601, end: 20151105
  12. DUODOPA [Suspect]
     Active Substance: CARBIDOPA\LEVODOPA
     Dosage: CONTINUOUS DOSE SLIGHTLY DECREASED
     Route: 050
     Dates: start: 20160128, end: 20160302
  13. DUODOPA [Suspect]
     Active Substance: CARBIDOPA\LEVODOPA
     Dosage: AM=4ML, CD=2.6ML/HR DURING 16HRS, ED=0.8ML
     Route: 050
     Dates: start: 20160519, end: 20160715
  14. DUODOPA [Suspect]
     Active Substance: CARBIDOPA\LEVODOPA
     Dosage: AM=3.5ML, CD=2.6ML/HR DURING 16HRS, ED=0.6ML
     Route: 050
     Dates: start: 20170126, end: 20170215
  15. DUODOPA [Suspect]
     Active Substance: CARBIDOPA\LEVODOPA
     Dosage: AM=3ML; CD=2.3ML/H FOR 16HRS; ED=1.5ML
     Route: 050
     Dates: start: 20151105, end: 20160105
  16. DUODOPA [Suspect]
     Active Substance: CARBIDOPA\LEVODOPA
     Dosage: AM= 4 ML; CD= 2.6 ML/H DURING 16 HRS; ED= 0.6 ML
     Route: 050
     Dates: start: 20161219, end: 20170126
  17. DUODOPA [Suspect]
     Active Substance: CARBIDOPA\LEVODOPA
     Dosage: AM=3ML, CD=2.4ML/HR DURING 16HRS, ED: 1.5 ML
     Route: 050
     Dates: start: 20160302, end: 20160330
  18. STALEVO [Concomitant]
     Active Substance: CARBIDOPA\ENTACAPONE\LEVODOPA
     Dosage: FORM STRENGTH: 150MG/37.5MG/200MG/AS EMERGENCY MEDICATION

REACTIONS (15)
  - Stoma site extravasation [Unknown]
  - Drug ineffective [Recovered/Resolved]
  - Device alarm issue [Unknown]
  - Asthenia [Recovering/Resolving]
  - Drug ineffective [Unknown]
  - Muscle rigidity [Unknown]
  - On and off phenomenon [Not Recovered/Not Resolved]
  - Device occlusion [Unknown]
  - Freezing phenomenon [Unknown]
  - Dyskinesia [Not Recovered/Not Resolved]
  - Drug effect decreased [Unknown]
  - Freezing phenomenon [Not Recovered/Not Resolved]
  - Feeling abnormal [Unknown]
  - Emotional disorder [Unknown]
  - Mobility decreased [Unknown]

NARRATIVE: CASE EVENT DATE: 20170209
